FAERS Safety Report 8447787-9 (Version None)
Quarter: 2012Q2

REPORT INFORMATION
  Report Type: 
  Country: None (occurrence: None)
  Receive Date: 20120619
  Receipt Date: 20120614
  Transmission Date: 20120825
  Serious: Yes (Life-Threatening, Hospitalization)
  Sender: FDA-Public Use
  Company Number: CA-ASTRAZENECA-2012SE40178

PATIENT
  Age: 81 Year
  Sex: Female

DRUGS (5)
  1. NEXIUM [Suspect]
     Route: 048
     Dates: start: 20111101, end: 20111101
  2. TELMISARTAN [Concomitant]
  3. OMEPRAZOLE (PRISOLEC) [Suspect]
     Indication: HIATUS HERNIA
     Route: 048
  4. WARFARIN SODIUM [Concomitant]
  5. METOPROLOL SUCCINATE [Concomitant]
     Route: 048

REACTIONS (5)
  - CARDIAC ARREST [None]
  - LOSS OF CONSCIOUSNESS [None]
  - CHILLS [None]
  - HYPERHIDROSIS [None]
  - EYE HAEMORRHAGE [None]
